FAERS Safety Report 7532483-2 (Version None)
Quarter: 2011Q2

REPORT INFORMATION
  Report Type: 
  Country: None (occurrence: None)
  Receive Date: 20110608
  Receipt Date: 20110526
  Transmission Date: 20111010
  Serious: Yes (Other)
  Sender: FDA-Public Use
  Company Number: PHHY2011FR47145

PATIENT
  Sex: Female

DRUGS (4)
  1. TAXOL [Suspect]
     Indication: BREAST CANCER
     Dosage: 100 MG / 17 ML
     Dates: start: 20100701, end: 20101222
  2. AVASTIN [Suspect]
     Indication: BREAST CANCER
     Dosage: 25 MG / ML
     Dates: start: 20100701, end: 20110415
  3. TAMOXIFEN CITRATE [Suspect]
     Dosage: UNK
     Dates: start: 20110107, end: 20110318
  4. ZOMETA [Suspect]
     Indication: BONE DISORDER
     Dosage: 4 MG / 5 ML
     Dates: start: 20100816, end: 20110415

REACTIONS (1)
  - OSTEONECROSIS OF JAW [None]
